FAERS Safety Report 8155594-X (Version None)
Quarter: 2012Q1

REPORT INFORMATION
  Report Type: 
  Country: None (occurrence: None)
  Receive Date: 20120222
  Receipt Date: 20120216
  Transmission Date: 20120608
  Serious: No
  Sender: FDA-Public Use
  Company Number: US-PFIZER INC-2012042661

PATIENT
  Sex: Female
  Weight: 81.633 kg

DRUGS (9)
  1. KLONOPIN [Concomitant]
     Indication: STRESS
  2. LYRICA [Suspect]
     Dosage: 75 MG, 3X/DAY
     Route: 048
     Dates: end: 20110801
  3. LISINOPRIL AND HYDROCHLOROTHIAZIDE [Concomitant]
     Indication: HYPERTENSION
     Dosage: 25 MG, 1X/DAY
  4. METFORMIN [Concomitant]
     Indication: DIABETES MELLITUS
     Dosage: 500 MG, 3X/DAY
  5. LYRICA [Suspect]
     Indication: BACK PAIN
     Dosage: 75 MG, UNK
     Route: 048
     Dates: start: 20100101
  6. LYRICA [Suspect]
     Dosage: 225 MG, 3X/DAY
     Route: 048
     Dates: start: 20110801
  7. ACETAMINOPHEN [Concomitant]
     Dosage: UNK, 3X/DAY
  8. CARVEDILOL [Concomitant]
     Dosage: 12.5 MG, 2X/DAY
  9. KLONOPIN [Concomitant]
     Indication: SLEEP DISORDER
     Dosage: UNK

REACTIONS (2)
  - DRUG EFFECT DECREASED [None]
  - SOMNOLENCE [None]
